FAERS Safety Report 19826312 (Version 1)
Quarter: 2021Q3

REPORT INFORMATION
  Report Type: Spontaneous
  Country: JP (occurrence: JP)
  Receive Date: 20210914
  Receipt Date: 20210914
  Transmission Date: 20211014
  Serious: Yes (Other)
  Sender: FDA-Public Use
  Company Number: JP-SA-2021SA300932

PATIENT
  Age: 78 Year
  Sex: Male

DRUGS (3)
  1. TAMSULOSIN [Concomitant]
     Active Substance: TAMSULOSIN
     Dosage: UNK
  2. MAINTATE [Concomitant]
     Active Substance: BISOPROLOL FUMARATE
     Dosage: UNK
  3. HARNAL [Suspect]
     Active Substance: TAMSULOSIN HYDROCHLORIDE
     Indication: DYSURIA
     Dosage: UNK (TOOK 0.2 RHG OR 0.1 MG, UNKNOWN FREQ.)
     Route: 048

REACTIONS (3)
  - Supraventricular tachycardia [Unknown]
  - Blood pressure increased [Unknown]
  - Dizziness postural [Unknown]
